FAERS Safety Report 20072060 (Version 1)
Quarter: 2021Q4

REPORT INFORMATION
  Report Type: Spontaneous
  Country: JP (occurrence: JP)
  Receive Date: 20211116
  Receipt Date: 20211116
  Transmission Date: 20220303
  Serious: Yes (Hospitalization, Other)
  Sender: FDA-Public Use
  Company Number: JP-NBI-S202100362BIPI

PATIENT
  Age: 76 Year
  Sex: Female

DRUGS (3)
  1. DABIGATRAN ETEXILATE MESYLATE [Suspect]
     Active Substance: DABIGATRAN ETEXILATE MESYLATE
     Indication: Atrial fibrillation
     Route: 048
  2. DIGOXIN [Concomitant]
     Active Substance: DIGOXIN
     Indication: Product used for unknown indication
     Route: 065
  3. RYTHMODAN [DISOPYRAMIDE] [Concomitant]
     Indication: Product used for unknown indication
     Route: 065

REACTIONS (1)
  - Cardiac failure [Unknown]
